FAERS Safety Report 17264669 (Version 6)
Quarter: 2020Q1

REPORT INFORMATION
  Report Type: Report from Study
  Country: MX (occurrence: MX)
  Receive Date: 20200113
  Receipt Date: 20200311
  Transmission Date: 20200409
  Serious: Yes (Life-Threatening, Hospitalization)
  Sender: FDA-Public Use
  Company Number: MX-EISAI MEDICAL RESEARCH-EC-2020-068388

PATIENT
  Age: 74 Year
  Sex: Female
  Weight: 38.4 kg

DRUGS (12)
  1. AVAPRO [Concomitant]
     Active Substance: IRBESARTAN
     Dates: start: 200710
  2. PEMBROLIZUMAB. [Suspect]
     Active Substance: PEMBROLIZUMAB
     Route: 041
     Dates: start: 20191226, end: 20191226
  3. PEMBROLIZUMAB. [Suspect]
     Active Substance: PEMBROLIZUMAB
     Route: 041
     Dates: start: 20200123
  4. ACETAMINOPHEN. [Concomitant]
     Active Substance: ACETAMINOPHEN
     Dates: start: 20191211
  5. PROCTOACID [Concomitant]
     Dates: start: 20191127
  6. BENZONATATE. [Concomitant]
     Active Substance: BENZONATATE
     Dates: start: 20191217
  7. PEMBROLIZUMAB. [Suspect]
     Active Substance: PEMBROLIZUMAB
     Indication: NON-SMALL CELL LUNG CANCER METASTATIC
     Route: 041
     Dates: start: 20191105, end: 20191203
  8. SINTROM [Concomitant]
     Active Substance: ACENOCOUMAROL
     Dates: start: 20191127
  9. IRON [Concomitant]
     Active Substance: IRON
     Dates: start: 201710
  10. LENVATINIB [Suspect]
     Active Substance: LENVATINIB
     Indication: NON-SMALL CELL LUNG CANCER METASTATIC
     Route: 048
     Dates: start: 20191105, end: 20200104
  11. FOLIC ACID. [Concomitant]
     Active Substance: FOLIC ACID
     Dates: start: 201710
  12. LACTULAX [Concomitant]
     Dates: start: 20191202

REACTIONS (1)
  - Haemoptysis [Recovered/Resolved]

NARRATIVE: CASE EVENT DATE: 20200104
